FAERS Safety Report 4380059-0 (Version None)
Quarter: 2004Q2

REPORT INFORMATION
  Report Type: 
  Country: None (occurrence: None)
  Receive Date: 20040617
  Receipt Date: 20031009
  Transmission Date: 20050107
  Serious: Yes (Hospitalization)
  Sender: FDA-Public Use
  Company Number: US-MERCK-0310USA01301

PATIENT
  Age: 42 Year
  Sex: Female
  Weight: 80 kg

DRUGS (9)
  1. ASPIRIN [Concomitant]
     Route: 065
  2. CELEBREX [Concomitant]
     Route: 065
     Dates: start: 20010401, end: 20010601
  3. SUDAL [Concomitant]
     Route: 065
  4. LEVAQUIN [Concomitant]
     Indication: SINUSITIS
     Route: 065
     Dates: start: 20010614
  5. SYNTHROID [Concomitant]
     Route: 065
  6. ZANTAC [Concomitant]
     Indication: GASTRITIS
     Route: 065
     Dates: start: 20010614
  7. VIOXX [Suspect]
     Indication: OSTEOARTHRITIS
     Route: 048
     Dates: start: 20010614, end: 20010101
  8. VIOXX [Suspect]
     Indication: FIBROMYALGIA
     Route: 048
     Dates: start: 20010614, end: 20010101
  9. ULTRAM [Concomitant]
     Indication: BACK INJURY
     Route: 065
     Dates: start: 20010614

REACTIONS (39)
  - ADRENAL INSUFFICIENCY [None]
  - ANGINA UNSTABLE [None]
  - ANXIETY [None]
  - ASTHENIA [None]
  - BRONCHITIS [None]
  - CARDIOMEGALY [None]
  - CATHETER SITE HAEMORRHAGE [None]
  - CELLULITIS [None]
  - CONTUSION [None]
  - CORONARY ARTERY DISEASE [None]
  - CORONARY ARTERY STENOSIS [None]
  - COSTOCHONDRITIS [None]
  - DIARRHOEA [None]
  - DIASTOLIC DYSFUNCTION [None]
  - DRUG INEFFECTIVE [None]
  - DRUG WITHDRAWAL SYNDROME [None]
  - DYSPHAGIA [None]
  - DYSPNOEA [None]
  - ELECTROCARDIOGRAM T WAVE INVERSION [None]
  - GASTROOESOPHAGEAL REFLUX DISEASE [None]
  - HAEMARTHROSIS [None]
  - HAEMATOMA [None]
  - HYPERPARATHYROIDISM [None]
  - HYPOTHYROIDISM [None]
  - INCREASED TENDENCY TO BRUISE [None]
  - INTESTINAL FUNCTIONAL DISORDER [None]
  - JOINT SWELLING [None]
  - LIBIDO DECREASED [None]
  - MUSCLE CRAMP [None]
  - MUSCULOSKELETAL CHEST PAIN [None]
  - MYOCARDIAL INFARCTION [None]
  - NEURALGIA [None]
  - OEDEMA [None]
  - PAIN [None]
  - PANIC ATTACK [None]
  - PNEUMONIA [None]
  - RAYNAUD'S PHENOMENON [None]
  - SPINAL OSTEOARTHRITIS [None]
  - WEIGHT INCREASED [None]
